FAERS Safety Report 5093250-5 (Version None)
Quarter: 2006Q3

REPORT INFORMATION
  Report Type: 
  Country: None (occurrence: None)
  Receive Date: 20060830
  Receipt Date: 20041105
  Transmission Date: 20061208
  Serious: Yes (Other)
  Sender: FDA-Public Use
  Company Number: NL-BOEHRINGER INGELHEIM PHARMACEUTICALS, INC.-2004-NL-00169NL

PATIENT
  Sex: Male

DRUGS (1)
  1. COMBIVENT [Suspect]
     Indication: DRUG USE FOR UNKNOWN INDICATION
     Route: 055

REACTIONS (1)
  - THERMAL BURN [None]
